FAERS Safety Report 6843807-3 (Version None)
Quarter: 2010Q3

REPORT INFORMATION
  Report Type: 
  Country: None (occurrence: None)
  Receive Date: 20100715
  Receipt Date: 20100701
  Transmission Date: 20110219
  Serious: Yes (Other)
  Sender: FDA-Public Use
  Company Number: PHHY2010FR40631

PATIENT
  Sex: Male
  Weight: 118 kg

DRUGS (6)
  1. COTAREG [Suspect]
     Indication: HYPERTENSION
     Dosage: 160/25 MG
     Route: 048
  2. CALDINE [Concomitant]
     Indication: HYPERTENSION
     Dosage: 6 MG, DAILY
     Route: 048
     Dates: start: 20060101
  3. HYPERIUM [Concomitant]
     Indication: HYPERTENSION
     Dosage: 1 MG, BID
     Dates: start: 20080325
  4. GLUCOPHAGE [Concomitant]
     Dosage: 850 MG, BID
  5. ALDACTONE [Concomitant]
     Indication: HYPERTENSION
     Dosage: 50 MG, DAILY
     Route: 048
     Dates: start: 20090421
  6. CELECTOL [Concomitant]
     Indication: HYPERTENSION
     Dosage: 100 MG, DAILY
     Dates: start: 20060101

REACTIONS (4)
  - FACE OEDEMA [None]
  - LARYNGEAL OEDEMA [None]
  - OVERWEIGHT [None]
  - URTICARIA [None]
